FAERS Safety Report 5650903-5 (Version None)
Quarter: 2008Q1

REPORT INFORMATION
  Report Type: 
  Country: None (occurrence: None)
  Receive Date: 20080305
  Receipt Date: 20080226
  Transmission Date: 20080703
  Serious: Yes (Life-Threatening, Hospitalization, Other)
  Sender: FDA-Public Use
  Company Number: PHBS2007JP19840

PATIENT
  Age: 45 Year
  Sex: Male
  Weight: 97 kg

DRUGS (12)
  1. DIOVAN [Suspect]
     Indication: HYPERTENSION
     Dosage: 40 MG/DAY
     Route: 048
     Dates: end: 20070419
  2. SELECAL [Suspect]
     Indication: HYPERTENSION
     Dosage: 10 MG/DAY
     Route: 048
     Dates: end: 20070419
  3. CONIEL [Suspect]
     Indication: HYPERTENSION
     Dosage: 4 MG/DAY
     Route: 048
     Dates: end: 20070419
  4. FLUITRAN [Suspect]
     Indication: HYPERTENSION
     Dosage: 2 MG/DAY
     Route: 048
     Dates: end: 20070419
  5. ULTIVA [Concomitant]
     Indication: ANAESTHESIA PROCEDURE
     Dosage: 0.05 UG/KG/MIN
     Route: 040
     Dates: start: 20070419, end: 20070419
  6. ULTIVA [Concomitant]
     Dosage: 0.25 MICRO G/KG/MIN
     Dates: start: 20070419, end: 20070419
  7. OXYGEN [Concomitant]
     Dosage: 6 L/MIN
  8. LIDOCAINE [Concomitant]
  9. DIPRIVAN [Concomitant]
     Indication: ANAESTHESIA PROCEDURE
     Dosage: 120 MG/ONCE
     Route: 040
     Dates: start: 20070419, end: 20070419
  10. MUSCULAX [Concomitant]
     Indication: ANAESTHESIA PROCEDURE
     Dosage: 10 MG/ONCE
     Route: 040
     Dates: start: 20070419, end: 20070419
  11. SEVOFLURANE [Concomitant]
     Indication: ANAESTHESIA PROCEDURE
     Route: 025
     Dates: start: 20070419, end: 20070419
  12. SEVOFLURANE [Concomitant]
     Dosage: 0,5%

REACTIONS (8)
  - BLOOD PRESSURE DECREASED [None]
  - CARDIAC ARREST [None]
  - CARDIAC MASSAGE [None]
  - ENDOTRACHEAL INTUBATION [None]
  - HEART RATE DECREASED [None]
  - MITRAL VALVE INCOMPETENCE [None]
  - MYOCARDIAL ISCHAEMIA [None]
  - SURGERY [None]
